FAERS Safety Report 6941380-2 (Version None)
Quarter: 2010Q3

REPORT INFORMATION
  Report Type: 
  Country: None (occurrence: None)
  Receive Date: 20100825
  Receipt Date: 20100824
  Transmission Date: 20110219
  Serious: Yes (Death, Life-Threatening, Other)
  Sender: FDA-Public Use
  Company Number: KR-ROXANE LABORATORIES, INC.-2010-RO-01130RO

PATIENT
  Age: 11 Year
  Sex: Female
  Weight: 36 kg

DRUGS (3)
  1. LORAZEPAM [Suspect]
     Indication: CONVULSION
     Route: 042
  2. BUPROPION [Suspect]
     Indication: ATTENTION DEFICIT/HYPERACTIVITY DISORDER
  3. BUPROPION [Suspect]
     Indication: TIC

REACTIONS (7)
  - BRADYCARDIA [None]
  - BRAIN DEATH [None]
  - CARDIAC ARREST [None]
  - ELECTROCARDIOGRAM QRS COMPLEX PROLONGED [None]
  - MUSCLE FATIGUE [None]
  - RESPIRATORY FAILURE [None]
  - SINUS TACHYCARDIA [None]
